FAERS Safety Report 11743484 (Version 2)
Quarter: 2015Q4

REPORT INFORMATION
  Report Type: Spontaneous
  Country: JP (occurrence: JP)
  Receive Date: 20151116
  Receipt Date: 20151125
  Transmission Date: 20160304
  Serious: Yes (Death, Life-Threatening, Other)
  Sender: FDA-Public Use
  Company Number: JP-ASTRAZENECA-2015SF09182

PATIENT
  Age: 76 Year
  Sex: Male

DRUGS (8)
  1. XTANDI [Concomitant]
     Active Substance: ENZALUTAMIDE
     Dates: start: 201505
  2. ZYTIGA [Concomitant]
     Active Substance: ABIRATERONE ACETATE
     Dates: start: 201504, end: 201505
  3. CASODEX [Suspect]
     Active Substance: BICALUTAMIDE
     Indication: PROSTATE CANCER
     Route: 048
     Dates: start: 20121001, end: 20130201
  4. XTANDI [Concomitant]
     Active Substance: ENZALUTAMIDE
     Dates: start: 201501, end: 201504
  5. ESTRACYT [Concomitant]
     Active Substance: ESTRAMUSTINE PHOSPHATE SODIUM
     Dates: start: 201305
  6. PROSEXOL [Concomitant]
     Active Substance: ETHINYL ESTRADIOL
     Dates: start: 201401
  7. LEUPLIN [Suspect]
     Active Substance: LEUPROLIDE ACETATE
     Indication: PROSTATE CANCER
     Dosage: DOSE UNKNOWN
     Route: 065
     Dates: start: 20121001, end: 20130201
  8. TAXOTERE [Concomitant]
     Active Substance: DOCETAXEL
     Dates: start: 201401, end: 201501

REACTIONS (7)
  - Death [Fatal]
  - Disseminated intravascular coagulation [Unknown]
  - Therapy cessation [Unknown]
  - Hepatic function abnormal [Unknown]
  - Malignant neoplasm progression [Unknown]
  - Pelvic pain [Unknown]
  - Drug hypersensitivity [Recovered/Resolved]

NARRATIVE: CASE EVENT DATE: 201302
